FAERS Safety Report 9756158 (Version 1)
Quarter: 2013Q4

REPORT INFORMATION
  Report Type: Spontaneous
  Country: US (occurrence: US)
  Receive Date: 20131213
  Receipt Date: 20131213
  Transmission Date: 20140711
  Serious: No
  Sender: FDA-Public Use
  Company Number: US-GLAXOSMITHKLINE-A1033886A

PATIENT
  Sex: Male

DRUGS (2)
  1. NICODERM [Suspect]
     Route: 062
  2. UNSPECIFIED [Suspect]

REACTIONS (2)
  - Depression [Unknown]
  - Rash [Unknown]
